FAERS Safety Report 5073443-3 (Version None)
Quarter: 2006Q3

REPORT INFORMATION
  Report Type: 
  Country: None (occurrence: None)
  Receive Date: 20060803
  Receipt Date: 20060724
  Transmission Date: 20061208
  Serious: Yes (Hospitalization)
  Sender: FDA-Public Use
  Company Number: 2006087846

PATIENT
  Age: 21 Year
  Sex: Female
  Weight: 42 kg

DRUGS (2)
  1. GABAPENTIN [Suspect]
     Indication: PAIN
     Dosage: 2.4 GRAM (300 MG,8 IN 1 D), ORAL
     Route: 048
     Dates: start: 20040701
  2. MEFENAMIC ACID [Concomitant]

REACTIONS (6)
  - CATATONIA [None]
  - DELUSION [None]
  - HALLUCINATION, AUDITORY [None]
  - PSYCHOTIC DISORDER [None]
  - STEREOTYPY [None]
  - STUPOR [None]
